FAERS Safety Report 13954394 (Version 1)
Quarter: 2017Q3

REPORT INFORMATION
  Report Type: Spontaneous
  Country: TR (occurrence: TR)
  Receive Date: 20170911
  Receipt Date: 20170911
  Transmission Date: 20171128
  Serious: Yes (Hospitalization, Other)
  Sender: FDA-Public Use
  Company Number: TR-APOTEX-2017AP018186

PATIENT
  Age: 27 Day
  Sex: Male

DRUGS (8)
  1. TOPIRAMATE. [Suspect]
     Active Substance: TOPIRAMATE
     Indication: MYOCLONIC EPILEPSY
     Route: 065
  2. PHENOBARBITAL. [Suspect]
     Active Substance: PHENOBARBITAL
     Indication: MYOCLONIC EPILEPSY
     Route: 065
  3. MIDAZOLAM [Suspect]
     Active Substance: MIDAZOLAM HYDROCHLORIDE
     Indication: MYOCLONIC EPILEPSY
     Route: 065
  4. LEVETIRACETAM. [Suspect]
     Active Substance: LEVETIRACETAM
     Indication: MYOCLONIC EPILEPSY
     Route: 065
  5. PHENYTOIN. [Suspect]
     Active Substance: PHENYTOIN
     Indication: MYOCLONIC EPILEPSY
     Route: 065
  6. VIGABATRIN. [Suspect]
     Active Substance: VIGABATRIN
     Indication: MYOCLONIC EPILEPSY
     Route: 065
  7. CLONAZEPAM. [Suspect]
     Active Substance: CLONAZEPAM
     Indication: MYOCLONIC EPILEPSY
     Route: 065
  8. PYRIDOXINE [Suspect]
     Active Substance: PYRIDOXINE
     Indication: MYOCLONIC EPILEPSY
     Route: 065

REACTIONS (1)
  - Drug resistance [Unknown]
